FAERS Safety Report 24579268 (Version 2)
Quarter: 2024Q4

REPORT INFORMATION
  Report Type: Report from Study
  Country: US (occurrence: US)
  Receive Date: 20241105
  Receipt Date: 20241122
  Transmission Date: 20250115
  Serious: Yes (Hospitalization, Other)
  Sender: ABBVIE
  Company Number: US-ABBVIE-5985564

PATIENT
  Sex: Female

DRUGS (1)
  1. UBRELVY [Suspect]
     Active Substance: UBROGEPANT
     Indication: Migraine
     Dosage: UNKNOWN
     Route: 048
     Dates: start: 20230218

REACTIONS (4)
  - Rehabilitation therapy [Unknown]
  - Loss of consciousness [Recovered/Resolved]
  - Haemorrhage [Unknown]
  - Fall [Recovered/Resolved]
